FAERS Safety Report 25177519 (Version 1)
Quarter: 2025Q2

REPORT INFORMATION
  Report Type: Spontaneous
  Country: BE (occurrence: None)
  Receive Date: 20250409
  Receipt Date: 20250409
  Transmission Date: 20250717
  Serious: Yes (Other)
  Sender: ENCUBE ETHICALS
  Company Number: BE-Encube-001718

PATIENT
  Age: 65 Year
  Sex: Male

DRUGS (5)
  1. GENTAMICIN SULFATE [Suspect]
     Active Substance: GENTAMICIN SULFATE
     Indication: Post procedural infection
  2. PENICILLIN G [Concomitant]
     Active Substance: PENICILLIN G
     Indication: Post procedural infection
  3. VALPROIC ACID [Concomitant]
     Active Substance: VALPROIC ACID
  4. LEVOMEPROMAZINE [Concomitant]
     Active Substance: LEVOMEPROMAZINE
  5. LEVOMEPROMAZINE [Concomitant]
     Active Substance: LEVOMEPROMAZINE

REACTIONS (2)
  - Renal impairment [Unknown]
  - Off label use [Unknown]
